FAERS Safety Report 19253929 (Version 8)
Quarter: 2023Q2

REPORT INFORMATION
  Report Type: Other
  Country: US (occurrence: None)
  Receive Date: 20210513
  Receipt Date: 20230605
  Transmission Date: 20230722
  Serious: Yes (Hospitalization)
  Sender: FDA-Public Use
  Company Number: US-ROCHE-2824784

PATIENT
  Age: 63 Year
  Sex: Female
  Weight: 56.296 kg

DRUGS (17)
  1. OCREVUS [Suspect]
     Active Substance: OCRELIZUMAB
     Indication: Relapsing-remitting multiple sclerosis
     Dosage: IV 600 MG EVERY 6 MONTHS?DOT: 12/MAY/2022, 12/NOV/2021, 02/JUN/2021, 29/OCT/2020, 11/NOV/2020, 16/MA
     Route: 042
     Dates: start: 20201029, end: 20201112
  2. OCREVUS [Suspect]
     Active Substance: OCRELIZUMAB
     Dosage: 300MG ON DAY 1 AND DAY 15, 600MG FOR EVERY 6 MONTHS
     Route: 042
     Dates: start: 20200429
  3. TECFIDERA [Concomitant]
     Active Substance: DIMETHYL FUMARATE
     Indication: Multiple sclerosis
  4. VITAMIN D3 [Concomitant]
     Active Substance: CHOLECALCIFEROL
  5. PROVIGIL [Concomitant]
     Active Substance: MODAFINIL
  6. OMEPRAZOLE [Concomitant]
     Active Substance: OMEPRAZOLE
  7. NAMENDA [Concomitant]
     Active Substance: MEMANTINE HYDROCHLORIDE
  8. METOPROLOL TARTRATE [Concomitant]
     Active Substance: METOPROLOL TARTRATE
     Indication: Hypertension
  9. MELOXICAM [Concomitant]
     Active Substance: MELOXICAM
  10. MECLIZINE [Concomitant]
     Active Substance: MECLIZINE HYDROCHLORIDE
  11. MAGNESIUM GLUCONATE [Concomitant]
     Active Substance: MAGNESIUM GLUCONATE
  12. DIAZEPAM [Concomitant]
     Active Substance: DIAZEPAM
     Route: 048
  13. DETROL LA [Concomitant]
     Active Substance: TOLTERODINE TARTRATE
  14. CELEBREX [Concomitant]
     Active Substance: CELECOXIB
  15. BACLOFEN [Concomitant]
     Active Substance: BACLOFEN
  16. AMANTADINE [Concomitant]
     Active Substance: AMANTADINE
  17. DIAZEPAM [Concomitant]
     Active Substance: DIAZEPAM
     Indication: Muscle spasms

REACTIONS (14)
  - COVID-19 [Recovered/Resolved]
  - Brain fog [Unknown]
  - Alopecia [Not Recovered/Not Resolved]
  - Weight decreased [Recovered/Resolved]
  - Memory impairment [Not Recovered/Not Resolved]
  - Disturbance in attention [Not Recovered/Not Resolved]
  - Drug ineffective [Unknown]
  - Mental disorder [Unknown]
  - Fatigue [Not Recovered/Not Resolved]
  - Epistaxis [Not Recovered/Not Resolved]
  - Rosacea [Not Recovered/Not Resolved]
  - Skin exfoliation [Not Recovered/Not Resolved]
  - Dandruff [Not Recovered/Not Resolved]
  - Hypertension [Recovered/Resolved]

NARRATIVE: CASE EVENT DATE: 20210412
